FAERS Safety Report 6550651-3 (Version None)
Quarter: 2010Q1

REPORT INFORMATION
  Report Type: 
  Country: None (occurrence: None)
  Receive Date: 20100125
  Receipt Date: 20090810
  Transmission Date: 20100710
  Serious: No
  Sender: FDA-Public Use
  Company Number: US-TYCO HEALTHCARE/MALLINCKRODT-T200901509

PATIENT
  Sex: Female
  Weight: 66.213 kg

DRUGS (3)
  1. OPTIRAY 350 [Suspect]
     Indication: COMPUTERISED TOMOGRAM
     Dosage: 96 ML, SINGLE
     Route: 042
     Dates: start: 20090622, end: 20090622
  2. SODIUM CHLORIDE [Concomitant]
     Indication: INTRAVENOUS CATHETER MANAGEMENT
     Dosage: 5 ML, SINGLE
     Route: 042
     Dates: start: 20090622, end: 20090622
  3. SODIUM CHLORIDE [Concomitant]
     Dosage: 20 ML, SINGLE
     Route: 042
     Dates: start: 20090622, end: 20090622

REACTIONS (2)
  - NASAL DISCOMFORT [None]
  - PRURITUS [None]
